FAERS Safety Report 6428471-X (Version None)
Quarter: 2009Q4

REPORT INFORMATION
  Report Type: 
  Country: None (occurrence: None)
  Receive Date: 20091105
  Receipt Date: 20091029
  Transmission Date: 20100525
  Serious: Yes (Hospitalization)
  Sender: FDA-Public Use
  Company Number: B0601383A

PATIENT
  Age: 74 Year
  Sex: Female

DRUGS (2)
  1. COROPRES [Suspect]
     Dosage: 12.5MG PER DAY
     Route: 048
     Dates: start: 20090121, end: 20090127
  2. MASDIL [Suspect]
     Dosage: 300MG PER DAY
     Route: 048
     Dates: start: 20090121, end: 20090127

REACTIONS (4)
  - BRADYCARDIA [None]
  - DRUG INTERACTION [None]
  - HYPERKALAEMIA [None]
  - RENAL FAILURE ACUTE [None]
